FAERS Safety Report 10208354 (Version 1)
Quarter: 2014Q2

REPORT INFORMATION
  Report Type: Spontaneous
  Country: KR (occurrence: KR)
  Receive Date: 20140530
  Receipt Date: 20140530
  Transmission Date: 20141212
  Serious: Yes (Hospitalization, Other)
  Sender: FDA-Public Use
  Company Number: KR-WATSON-2014-11647

PATIENT
  Age: 71 Year
  Sex: Male

DRUGS (1)
  1. BACLOFEN (UNKNOWN) [Suspect]
     Indication: HICCUPS
     Dosage: 10 MG, TID
     Route: 065

REACTIONS (1)
  - Toxic encephalopathy [Recovered/Resolved]
